FAERS Safety Report 24966548 (Version 1)
Quarter: 2025Q1

REPORT INFORMATION
  Report Type: Spontaneous
  Country: AE (occurrence: AE)
  Receive Date: 20250213
  Receipt Date: 20250213
  Transmission Date: 20250408
  Serious: Yes (Hospitalization)
  Sender: NOVARTIS
  Company Number: AE-002147023-NVSC2025AE022948

PATIENT
  Age: 72 Year
  Sex: Male

DRUGS (2)
  1. TASIGNA [Suspect]
     Active Substance: NILOTINIB
     Indication: Chronic myeloid leukaemia
     Dosage: 400 MG, BID (DOSE REDUCED BY HIMSELF TO 400MG AS HE SOMETIMES SET SOB)
     Route: 048
     Dates: start: 2012
  2. IMATINIB [Suspect]
     Active Substance: IMATINIB
     Indication: Chronic myeloid leukaemia
     Route: 065
     Dates: start: 2007, end: 2009

REACTIONS (4)
  - Pulmonary oedema [Unknown]
  - Diastolic dysfunction [Unknown]
  - Pulmonary arterial pressure increased [Unknown]
  - Drug intolerance [Unknown]
